FAERS Safety Report 5884510-6 (Version None)
Quarter: 2008Q3

REPORT INFORMATION
  Report Type: 
  Country: None (occurrence: None)
  Receive Date: 20080916
  Receipt Date: 20080728
  Transmission Date: 20090109
  Serious: Yes (Other)
  Sender: FDA-Public Use
  Company Number: US-JNJFOC-20080707454

PATIENT
  Sex: Male
  Weight: 20.41 kg

DRUGS (5)
  1. CONCERTA [Suspect]
     Route: 048
  2. CONCERTA [Suspect]
     Indication: ATTENTION DEFICIT/HYPERACTIVITY DISORDER
     Route: 048
  3. TYLENOL (CAPLET) [Concomitant]
  4. CODEINE SUL TAB [Concomitant]
  5. ORAL ANTIBIOTIC [Concomitant]

REACTIONS (8)
  - AGITATION [None]
  - CRYING [None]
  - FEAR [None]
  - HALLUCINATION, VISUAL [None]
  - INSOMNIA [None]
  - PARANOIA [None]
  - PRURITUS [None]
  - SACCADIC EYE MOVEMENT [None]
